FAERS Safety Report 17271876 (Version 1)
Quarter: 2020Q1

REPORT INFORMATION
  Report Type: Spontaneous
  Country: US (occurrence: US)
  Receive Date: 20200115
  Receipt Date: 20200115
  Transmission Date: 20200409
  Serious: Yes (Other)
  Sender: FDA-Public Use
  Company Number: US-SA-2020SA010664

PATIENT
  Age: 64 Year
  Sex: Male

DRUGS (5)
  1. ENTYVIO [Suspect]
     Active Substance: VEDOLIZUMAB
     Indication: COLITIS ULCERATIVE
     Dosage: 300 MG
     Route: 042
     Dates: start: 20190321
  2. PREDNISONE. [Concomitant]
     Active Substance: PREDNISONE
     Dosage: UNK
  3. ENTYVIO [Suspect]
     Active Substance: VEDOLIZUMAB
     Dosage: 300 MG, Q4W
     Route: 042
     Dates: start: 20190930
  4. PLAVIX [Suspect]
     Active Substance: CLOPIDOGREL BISULFATE
     Indication: PRODUCT USED FOR UNKNOWN INDICATION
     Dosage: UNK
  5. LIPITOR [Concomitant]
     Active Substance: ATORVASTATIN CALCIUM
     Dosage: UNK

REACTIONS (28)
  - Abdominal pain [Not Recovered/Not Resolved]
  - Defaecation urgency [Not Recovered/Not Resolved]
  - Peripheral swelling [Unknown]
  - Anaemia [Not Recovered/Not Resolved]
  - Dehydration [Unknown]
  - Pallor [Recovering/Resolving]
  - Weight decreased [Unknown]
  - Sedation [Unknown]
  - Frequent bowel movements [Not Recovered/Not Resolved]
  - Eyelid margin crusting [Unknown]
  - Anal incontinence [Unknown]
  - Muscle spasms [Recovered/Resolved]
  - Rash pruritic [Not Recovered/Not Resolved]
  - Rectal haemorrhage [Unknown]
  - Drug ineffective [Unknown]
  - Off label use [Unknown]
  - Abdominal discomfort [Unknown]
  - Inflammation [Unknown]
  - Chest pain [Unknown]
  - Flatulence [Unknown]
  - Muscle twitching [Unknown]
  - Blood pressure decreased [Unknown]
  - Diarrhoea [Unknown]
  - Abnormal faeces [Unknown]
  - Malaise [Unknown]
  - Pain in extremity [Unknown]
  - Vein rupture [Unknown]
  - Drug level decreased [Unknown]

NARRATIVE: CASE EVENT DATE: 2019
